FAERS Safety Report 6909260-6 (Version None)
Quarter: 2010Q3

REPORT INFORMATION
  Report Type: 
  Country: None (occurrence: None)
  Receive Date: 20100805
  Receipt Date: 20100726
  Transmission Date: 20110219
  Serious: Yes (Hospitalization, Other)
  Sender: FDA-Public Use
  Company Number: US-GENZYME-THYM-1001723

PATIENT
  Age: 59 Year
  Sex: Male

DRUGS (6)
  1. THYMOGLOBULIN [Suspect]
     Indication: HEART TRANSPLANT REJECTION
     Dosage: UNK
     Route: 042
  2. CEFTRIAXONE [Concomitant]
     Indication: PROPHYLAXIS
  3. AZITHROMYCIN [Concomitant]
     Indication: ANTIBIOTIC PROPHYLAXIS
  4. METHYLPREDNISOLONE [Concomitant]
     Indication: HEART TRANSPLANT REJECTION
  5. VALGANCICLOVIR [Concomitant]
     Indication: PROPHYLAXIS
  6. ATOVAQUONE [Concomitant]
     Indication: PROPHYLAXIS

REACTIONS (5)
  - DISSEMINATED INTRAVASCULAR COAGULATION [None]
  - EPSTEIN-BARR VIRUS INFECTION [None]
  - LEFT VENTRICULAR DYSFUNCTION [None]
  - MULTI-ORGAN FAILURE [None]
  - TRANSPLANT FAILURE [None]
